FAERS Safety Report 9363572 (Version 2)
Quarter: 2013Q3

REPORT INFORMATION
  Report Type: Spontaneous
  Country: IT (occurrence: IT)
  Receive Date: 20130624
  Receipt Date: 20130712
  Transmission Date: 20140515
  Serious: Yes (Other)
  Sender: FDA-Public Use
  Company Number: PHHY2013IT063465

PATIENT
  Sex: Female

DRUGS (4)
  1. SANDOSTATIN LAR [Suspect]
     Dosage: 10 MG, UNK
     Dates: start: 201303, end: 201305
  2. LONGASTATINA LAR [Concomitant]
     Dosage: 10 MG, ONE VIAL/MONTH
     Dates: start: 201206, end: 201302
  3. LONGASTATINA LAR [Concomitant]
     Dosage: 02 VIAL/MONTH
     Dates: start: 201302, end: 201303
  4. LONGASTATINA LAR [Concomitant]
     Dosage: 02 VIAL/MONTH
     Dates: start: 201305

REACTIONS (1)
  - Haemoglobin decreased [Recovering/Resolving]
